FAERS Safety Report 20611944 (Version 1)
Quarter: 2022Q1

REPORT INFORMATION
  Report Type: Spontaneous
  Country: US (occurrence: None)
  Receive Date: 20220317
  Receipt Date: 20220317
  Transmission Date: 20220423
  Serious: No
  Sender: FDA-Public Use
  Company Number: None

PATIENT

DRUGS (1)
  1. HEPARIN [Suspect]
     Active Substance: HEPARIN SODIUM

REACTIONS (3)
  - Drug level below therapeutic [None]
  - Device infusion issue [None]
  - Product container issue [None]

NARRATIVE: CASE EVENT DATE: 20220207
